APPROVED DRUG PRODUCT: CEFTRIAXONE
Active Ingredient: CEFTRIAXONE SODIUM
Strength: EQ 2GM BASE/VIAL
Dosage Form/Route: INJECTABLE;INTRAMUSCULAR, INTRAVENOUS
Application: A210197 | Product #004
Applicant: DEVA HOLDING AS
Approved: Jan 12, 2024 | RLD: No | RS: No | Type: DISCN